FAERS Safety Report 6665833-X (Version None)
Quarter: 2010Q1

REPORT INFORMATION
  Report Type: 
  Country: None (occurrence: None)
  Receive Date: 20100329
  Receipt Date: 20091228
  Transmission Date: 20100710
  Serious: No
  Sender: FDA-Public Use
  Company Number: 2009-00932

PATIENT
  Age: 42 Year
  Sex: Female
  Weight: 58.0604 kg

DRUGS (5)
  1. COLD REMEDY NASAL GEL [Suspect]
     Indication: NASOPHARYNGITIS
     Dosage: TID - 3 DAYS
     Dates: start: 20091114, end: 20091117
  2. CITALOPRAM HYDROBROMIDE [Concomitant]
  3. OMEPRAZOLE [Concomitant]
  4. FISH OIL [Concomitant]
  5. FLONASE [Concomitant]

REACTIONS (1)
  - ANOSMIA [None]
